APPROVED DRUG PRODUCT: NORETHINDRONE AND ETHINYL ESTRADIOL AND FERROUS FUMARATE
Active Ingredient: ETHINYL ESTRADIOL; NORETHINDRONE
Strength: 0.035MG;0.4MG
Dosage Form/Route: TABLET;ORAL
Application: A202086 | Product #001 | TE Code: AB
Applicant: XIROMED LLC
Approved: Apr 1, 2015 | RLD: No | RS: Yes | Type: RX